FAERS Safety Report 8262078-7 (Version None)
Quarter: 2012Q2

REPORT INFORMATION
  Report Type: 
  Country: None (occurrence: None)
  Receive Date: 20120402
  Receipt Date: 20120323
  Transmission Date: 20120825
  Serious: Yes (Hospitalization)
  Sender: FDA-Public Use
  Company Number: 2012SP016267

PATIENT
  Age: 41 Year
  Sex: Male

DRUGS (4)
  1. TRAMADOL HYDROHLORIDE [Suspect]
     Indication: PRODUCT USED FOR UNKNOWN INDICATION
     Dosage: 1000 MG; ONCE; PO
     Route: 048
     Dates: start: 20111120, end: 20111120
  2. LORAZEPAM [Suspect]
     Indication: PRODUCT USED FOR UNKNOWN INDICATION
     Dosage: 10 MG; ONCE; PO
     Route: 048
     Dates: start: 20111120, end: 20111120
  3. TRAMADOL HYDROCHLORIDE [Suspect]
     Indication: PRODUCT USED FOR UNKNOWN INDICATION
     Dosage: 4000 MG;ONCE;
     Dates: start: 20111120, end: 20111120
  4. REMERON [Suspect]
     Indication: PRODUCT USED FOR UNKNOWN INDICATION
     Dosage: 300 MG;ONCE;
     Dates: start: 20111120, end: 20111120

REACTIONS (6)
  - TACHYCARDIA [None]
  - SOMNOLENCE [None]
  - ATRIOVENTRICULAR BLOCK FIRST DEGREE [None]
  - OVERDOSE [None]
  - SUICIDE ATTEMPT [None]
  - ATRIOVENTRICULAR BLOCK SECOND DEGREE [None]
